FAERS Safety Report 8993300 (Version 1)
Quarter: 2013Q1

REPORT INFORMATION
  Report Type: Spontaneous
  Country: US (occurrence: US)
  Receive Date: 20130102
  Receipt Date: 20130102
  Transmission Date: 20140127
  Serious: No
  Sender: FDA-Public Use
  Company Number: US-PFIZER INC-2012332632

PATIENT
  Age: 46 Year
  Sex: Female
  Weight: 73.92 kg

DRUGS (5)
  1. PRISTIQ [Suspect]
     Indication: DEPRESSION
     Dosage: 100 MG, UNK
     Dates: end: 2012
  2. EFFEXOR XR [Suspect]
     Indication: DEPRESSION
     Dosage: UNK
  3. WELLBUTRIN [Suspect]
     Indication: DEPRESSION
     Dosage: UNK
  4. PAXIL [Suspect]
     Indication: DEPRESSION
     Dosage: UNK
  5. LEXAPRO [Suspect]
     Indication: ANXIETY
     Dosage: UNK

REACTIONS (19)
  - Drug ineffective [Unknown]
  - Lethargy [Unknown]
  - Loss of libido [Unknown]
  - Fatigue [Unknown]
  - Weight increased [Unknown]
  - Headache [Unknown]
  - Obsessive thoughts [Unknown]
  - Withdrawal syndrome [Unknown]
  - Feeling abnormal [Unknown]
  - Diarrhoea [Unknown]
  - Depression [Unknown]
  - Anxiety [Unknown]
  - Nausea [Unknown]
  - Appetite disorder [Unknown]
  - Nasopharyngitis [Unknown]
  - Cough [Unknown]
  - Paraesthesia [Unknown]
  - Fear [Unknown]
  - Agoraphobia [Unknown]
